FAERS Safety Report 5084310-3 (Version None)
Quarter: 2006Q3

REPORT INFORMATION
  Report Type: 
  Country: None (occurrence: None)
  Receive Date: 20060816
  Receipt Date: 20060807
  Transmission Date: 20061208
  Serious: Yes (Hospitalization)
  Sender: FDA-Public Use
  Company Number: T200600857

PATIENT
  Age: 60 Year
  Sex: Female

DRUGS (1)
  1. OPTIRAY 350 [Suspect]
     Indication: COMPUTERISED TOMOGRAM
     Dosage: 125 ML INTRAVENOUS
     Route: 042
     Dates: start: 20060618, end: 20060618

REACTIONS (4)
  - APNOEA [None]
  - CARDIAC ARREST [None]
  - CYANOSIS [None]
  - LUNG DISORDER [None]
